FAERS Safety Report 11499913 (Version 21)
Quarter: 2024Q2

REPORT INFORMATION
  Report Type: Other
  Country: CA (occurrence: CA)
  Receive Date: 20150914
  Receipt Date: 20240405
  Transmission Date: 20240715
  Serious: Yes (Other)
  Sender: FDA-Public Use
  Company Number: CA-ROCHE-1633144

PATIENT
  Age: 53 Year
  Sex: Female

DRUGS (30)
  1. XOLAIR [Suspect]
     Active Substance: OMALIZUMAB
     Indication: Asthma
     Dosage: 375 MG, BIW?POWDER AND SOLVENT FOR SOLUTION FOR INJECTION
     Route: 058
     Dates: start: 20140911
  2. XOLAIR [Suspect]
     Active Substance: OMALIZUMAB
     Dosage: UNK?POWDER AND SOLVENT FOR SOLUTION FOR INJECTION
     Route: 058
     Dates: start: 20140925
  3. XOLAIR [Suspect]
     Active Substance: OMALIZUMAB
     Dosage: UNK?POWDER AND SOLVENT FOR SOLUTION FOR INJECTION
     Route: 058
     Dates: start: 20151105
  4. XOLAIR [Suspect]
     Active Substance: OMALIZUMAB
     Dosage: UNK?POWDER AND SOLVENT FOR SOLUTION FOR INJECTION
     Route: 058
     Dates: start: 20151217
  5. XOLAIR [Suspect]
     Active Substance: OMALIZUMAB
     Dosage: UNK?POWDER AND SOLVENT FOR SOLUTION FOR INJECTION
     Route: 058
     Dates: start: 20160825
  6. XOLAIR [Suspect]
     Active Substance: OMALIZUMAB
     Dosage: UNK?POWDER AND SOLVENT FOR SOLUTION FOR INJECTION
     Route: 058
     Dates: start: 20161229
  7. XOLAIR [Suspect]
     Active Substance: OMALIZUMAB
     Dosage: UNK?POWDER AND SOLVENT FOR SOLUTION FOR INJECTION
     Route: 058
     Dates: start: 201701
  8. XOLAIR [Suspect]
     Active Substance: OMALIZUMAB
     Dosage: UNK?POWDER AND SOLVENT FOR SOLUTION FOR INJECTION
     Route: 058
     Dates: start: 20171219
  9. XOLAIR [Suspect]
     Active Substance: OMALIZUMAB
     Dosage: UNK?POWDER AND SOLVENT FOR SOLUTION FOR INJECTION
     Route: 058
     Dates: start: 20171219
  10. XOLAIR [Suspect]
     Active Substance: OMALIZUMAB
     Dosage: UNK?POWDER AND SOLVENT FOR SOLUTION FOR INJECTION
     Route: 058
     Dates: start: 20180102
  11. XOLAIR [Suspect]
     Active Substance: OMALIZUMAB
     Route: 058
     Dates: start: 20180717
  12. XOLAIR [Suspect]
     Active Substance: OMALIZUMAB
     Dosage: 375 MG, BIW?POWDER AND SOLVENT FOR SOLUTION FOR INJECTION
     Route: 058
     Dates: start: 20190423
  13. XOLAIR [Suspect]
     Active Substance: OMALIZUMAB
     Dosage: 375 MG, BIW?POWDER AND SOLVENT FOR SOLUTION FOR INJECTION
     Route: 058
     Dates: start: 20190827
  14. XOLAIR [Suspect]
     Active Substance: OMALIZUMAB
     Dosage: PREFILLED SYRINGE
     Route: 058
     Dates: start: 20140911
  15. XOLAIR [Suspect]
     Active Substance: OMALIZUMAB
     Route: 058
  16. XOLAIR [Suspect]
     Active Substance: OMALIZUMAB
     Route: 058
  17. XOLAIR [Suspect]
     Active Substance: OMALIZUMAB
     Route: 058
  18. XOLAIR [Suspect]
     Active Substance: OMALIZUMAB
     Route: 058
  19. XOLAIR [Suspect]
     Active Substance: OMALIZUMAB
     Route: 058
     Dates: start: 20180717
  20. XOLAIR [Suspect]
     Active Substance: OMALIZUMAB
     Dosage: 375 MG, BIW?POWDER AND SOLVENT FOR SOLUTION FOR INJECTION
     Route: 058
     Dates: start: 20190827
  21. XOLAIR [Suspect]
     Active Substance: OMALIZUMAB
     Dosage: SOLUTION FOR INJECTION IN PRE-FILLED SYRINGE
     Route: 058
  22. XOLAIR [Suspect]
     Active Substance: OMALIZUMAB
     Dosage: SOLUTION FOR INJECTION IN PRE-FILLED SYRINGE
     Route: 058
  23. XOLAIR [Suspect]
     Active Substance: OMALIZUMAB
     Dosage: POWDER AND SOLVENT FOR SOLUTION FOR INJECTION
     Route: 058
  24. DIOVAN [Suspect]
     Active Substance: VALSARTAN
     Indication: Product used for unknown indication
     Route: 048
  25. CODEINE PHOSPHATE [Suspect]
     Active Substance: CODEINE PHOSPHATE
     Indication: Product used for unknown indication
     Dosage: UNK
     Route: 065
  26. NAPROSYN [Suspect]
     Active Substance: NAPROXEN
     Indication: Back pain
     Route: 065
  27. NAPROSYN [Suspect]
     Active Substance: NAPROXEN
     Indication: Fall
     Route: 065
  28. GLYCOPYRRONIUM\INDACATEROL [Concomitant]
     Active Substance: GLYCOPYRRONIUM\INDACATEROL
     Indication: Asthma
     Route: 055
  29. ALVESCO [Concomitant]
     Active Substance: CICLESONIDE
     Indication: Product used for unknown indication
     Route: 065
  30. VENTOLIN [Concomitant]
     Active Substance: ALBUTEROL SULFATE
     Indication: Product used for unknown indication
     Route: 065

REACTIONS (30)
  - Blood pressure systolic increased [Unknown]
  - Headache [Unknown]
  - Nausea [Unknown]
  - Dizziness [Unknown]
  - Diabetes mellitus [Unknown]
  - Drug hypersensitivity [Unknown]
  - Bronchitis [Recovering/Resolving]
  - Pyrexia [Unknown]
  - Cough [Not Recovered/Not Resolved]
  - Illness [Not Recovered/Not Resolved]
  - Oropharyngeal pain [Unknown]
  - Gastrointestinal disorder [Unknown]
  - Respiratory rate increased [Unknown]
  - Body temperature increased [Unknown]
  - Diarrhoea [Unknown]
  - Productive cough [Unknown]
  - Sputum discoloured [Unknown]
  - Influenza [Unknown]
  - Rotator cuff syndrome [Unknown]
  - Fatigue [Unknown]
  - Back pain [Unknown]
  - Fall [Unknown]
  - Chest pain [Unknown]
  - Injection site pain [Unknown]
  - Pain in extremity [Unknown]
  - Injection site hypersensitivity [Unknown]
  - Injection site hypoaesthesia [Unknown]
  - Injection site hyperaesthesia [Unknown]
  - Incorrect dose administered [Unknown]
  - Wrong technique in product usage process [Unknown]

NARRATIVE: CASE EVENT DATE: 20140925
